FAERS Safety Report 13265865 (Version 2)
Quarter: 2017Q3

REPORT INFORMATION
  Report Type: Spontaneous
  Country: US (occurrence: US)
  Receive Date: 20170223
  Receipt Date: 20170825
  Transmission Date: 20171127
  Serious: Yes (Hospitalization)
  Sender: FDA-Public Use
  Company Number: US-MYLANLABS-2016M1040593

PATIENT
  Age: 67 Year
  Sex: Female
  Weight: 77.98 kg

DRUGS (9)
  1. VANCOMYCIN HCL USP [Suspect]
     Active Substance: VANCOMYCIN HYDROCHLORIDE
     Indication: SEPSIS
     Dosage: Q12H
     Route: 042
     Dates: start: 20160909, end: 201609
  2. CALCIUM CARBONATE. [Concomitant]
     Active Substance: CALCIUM CARBONATE
     Dosage: 500 MG, PRN
  3. VANCOMYCIN HYDROCHLORIDE USP [Suspect]
     Active Substance: VANCOMYCIN HYDROCHLORIDE
     Indication: SEPSIS
     Dosage: Q12H
     Route: 042
     Dates: start: 20160909, end: 201609
  4. ONDANSETRON [Concomitant]
     Active Substance: ONDANSETRON
     Dosage: 4 MG, PRN
     Route: 048
  5. WARFARIN [Concomitant]
     Active Substance: WARFARIN
     Dosage: 1 MG, QD
  6. VANCOMYCIN HCL USP [Suspect]
     Active Substance: VANCOMYCIN HYDROCHLORIDE
     Dosage: Q12H
     Dates: start: 20160909, end: 201609
  7. PROMETHAZINE [Concomitant]
     Active Substance: PROMETHAZINE\PROMETHAZINE HYDROCHLORIDE
     Dosage: 12.5 MG, PRN
     Route: 048
  8. ROZEREM [Concomitant]
     Active Substance: RAMELTEON
     Dosage: 8 MG, AS DIRECTED
     Route: 048
  9. HEPARIN SALINE [Concomitant]
     Dosage: FLUSH
     Route: 042

REACTIONS (1)
  - Blood creatinine increased [Unknown]

NARRATIVE: CASE EVENT DATE: 20160912
